FAERS Safety Report 20196733 (Version 1)
Quarter: 2021Q4

REPORT INFORMATION
  Report Type: Spontaneous
  Country: US (occurrence: US)
  Receive Date: 20211216
  Receipt Date: 20211216
  Transmission Date: 20220303
  Serious: No
  Sender: FDA-Public Use
  Company Number: US-BEH-2021139268

PATIENT
  Sex: Male

DRUGS (4)
  1. HIZENTRA [Suspect]
     Active Substance: HUMAN IMMUNOGLOBULIN G
     Indication: Humoral immune defect
     Dosage: 2.5 GRAM, QW
     Route: 058
     Dates: start: 20200222
  2. SUMATRIPTAN [Concomitant]
     Active Substance: SUMATRIPTAN
  3. TOPIRAMATE [Concomitant]
     Active Substance: TOPIRAMATE
  4. ERENUMAB [Concomitant]
     Active Substance: ERENUMAB

REACTIONS (1)
  - General physical health deterioration [Unknown]
